APPROVED DRUG PRODUCT: LOFEXIDINE HYDROCHLORIDE
Active Ingredient: LOFEXIDINE HYDROCHLORIDE
Strength: EQ 0.18MG BASE
Dosage Form/Route: TABLET;ORAL
Application: A219917 | Product #001 | TE Code: AB
Applicant: NOVITIUM PHARMA LLC
Approved: Oct 22, 2025 | RLD: No | RS: No | Type: RX